FAERS Safety Report 6159562-9 (Version None)
Quarter: 2009Q2

REPORT INFORMATION
  Report Type: 
  Country: None (occurrence: None)
  Receive Date: 20090420
  Receipt Date: 20090408
  Transmission Date: 20091009
  Serious: Yes (Hospitalization)
  Sender: FDA-Public Use
  Company Number: NL-BAYER-200918267GPV

PATIENT
  Age: 56 Year
  Sex: Male

DRUGS (1)
  1. ULTRAVIST 300 [Suspect]
     Indication: COMPUTERISED TOMOGRAM ABDOMEN
     Dosage: TOTAL DAILY DOSE: 80 ML
     Route: 042
     Dates: start: 20090331, end: 20090331

REACTIONS (4)
  - BURNING SENSATION [None]
  - RASH [None]
  - SUDDEN HEARING LOSS [None]
  - SWELLING FACE [None]
